FAERS Safety Report 5436945-3 (Version None)
Quarter: 2007Q3

REPORT INFORMATION
  Report Type: 
  Country: None (occurrence: None)
  Receive Date: 20070831
  Receipt Date: 20070828
  Transmission Date: 20080115
  Serious: Yes (Death)
  Sender: FDA-Public Use
  Company Number: JP-ASTRAZENECA-2007AP05391

PATIENT
  Age: 51 Year
  Sex: Male

DRUGS (1)
  1. DIPRIVAN [Suspect]
     Indication: SEDATIVE THERAPY
     Dosage: 10ML/HR
     Route: 042

REACTIONS (1)
  - DEATH [None]
